FAERS Safety Report 6737994-5 (Version None)
Quarter: 2010Q2

REPORT INFORMATION
  Report Type: 
  Country: None (occurrence: None)
  Receive Date: 20100520
  Receipt Date: 20100428
  Transmission Date: 20101027
  Serious: Yes (Other)
  Sender: FDA-Public Use
  Company Number: ZYD-10-AE-103

PATIENT
  Sex: Female

DRUGS (1)
  1. AMLODIPINE [Suspect]

REACTIONS (2)
  - BONE DENSITY DECREASED [None]
  - GINGIVITIS [None]
